FAERS Safety Report 5479596-7 (Version None)
Quarter: 2007Q4

REPORT INFORMATION
  Report Type: 
  Country: None (occurrence: None)
  Receive Date: 20071008
  Receipt Date: 20070924
  Transmission Date: 20080405
  Serious: Yes (Hospitalization, Other)
  Sender: FDA-Public Use
  Company Number: US-RANBAXY-2007US-10264

PATIENT

DRUGS (5)
  1. VERAPAMIL [Suspect]
     Indication: HYPERTENSION
     Dosage: 240 MG, LP, HALF TABLET DAILY
     Route: 048
     Dates: end: 20070704
  2. VALACYCLOVIR HCL [Suspect]
     Indication: HERPES ZOSTER
     Dosage: UNK
     Dates: start: 20070501, end: 20070601
  3. FLUINDIONE [Concomitant]
     Indication: EMBOLISM
     Dosage: UNK
  4. FLUINDIONE [Concomitant]
     Indication: VEIN DISORDER
  5. BEZAFIBRATE [Concomitant]
     Indication: DYSLIPIDAEMIA
     Dosage: UNK

REACTIONS (5)
  - COGNITIVE DISORDER [None]
  - DEMENTIA ALZHEIMER'S TYPE [None]
  - HYPOTENSION [None]
  - MALAISE [None]
  - SHOCK [None]
